FAERS Safety Report 13819223 (Version 1)
Quarter: 2017Q3

REPORT INFORMATION
  Report Type: Report from Study
  Country: US (occurrence: US)
  Receive Date: 20170731
  Receipt Date: 20170731
  Transmission Date: 20171127
  Serious: No
  Sender: FDA-Public Use
  Company Number: US-EXELIXIS-CABO-17008158

PATIENT
  Sex: Male

DRUGS (25)
  1. FOLIC ACID. [Concomitant]
     Active Substance: FOLIC ACID
  2. IMDUR [Concomitant]
     Active Substance: ISOSORBIDE MONONITRATE
  3. VITAMIN C [Concomitant]
     Active Substance: ASCORBIC ACID
  4. ALENDRONATE [Concomitant]
     Active Substance: ALENDRONATE SODIUM
  5. PREDNISONE. [Concomitant]
     Active Substance: PREDNISONE
  6. MULTIVITAMINS [Concomitant]
     Active Substance: VITAMINS
  7. HEPARIN [Concomitant]
     Active Substance: HEPARIN SODIUM
  8. ARANESP [Concomitant]
     Active Substance: DARBEPOETIN ALFA
  9. LASIX [Concomitant]
     Active Substance: FUROSEMIDE
  10. CALCIUM ACETATE. [Concomitant]
     Active Substance: CALCIUM ACETATE
  11. COMPAZINE [Concomitant]
     Active Substance: PROCHLORPERAZINE MALEATE
  12. CABOMETYX [Suspect]
     Active Substance: CABOZANTINIB S-MALATE
     Dosage: 60 MG, MON., WED., FRI., SUN.
     Route: 048
     Dates: start: 201704
  13. VITAMIN D [Concomitant]
     Active Substance: CHOLECALCIFEROL
  14. TERAZOSIN [Concomitant]
     Active Substance: TERAZOSIN\TERAZOSIN HYDROCHLORIDE
  15. ALLOPURINOL. [Concomitant]
     Active Substance: ALLOPURINOL
  16. FERRLECIT [Concomitant]
     Active Substance: SODIUM FERRIC GLUCONATE COMPLEX
  17. PRAVASTATIN. [Concomitant]
     Active Substance: PRAVASTATIN
  18. ASPIRIN. [Concomitant]
     Active Substance: ASPIRIN
  19. CLONIDINE. [Concomitant]
     Active Substance: CLONIDINE
  20. NIFEDIPINE. [Concomitant]
     Active Substance: NIFEDIPINE
  21. CELLCEPT [Concomitant]
     Active Substance: MYCOPHENOLATE MOFETIL\MYCOPHENOLATE MOFETIL HYDROCHLORIDE
  22. RENA-VITE [Concomitant]
     Active Substance: ASCORBIC ACID\BIOTIN\CALCIUM PANTOTHENATE\CYANOCOBALAMIN\FOLIC ACID\NIACINAMIDE\PYRIDOXINE HYDROCHLORIDE\RIBOFLAVIN\THIAMINE MONONITRATE
  23. CABOMETYX [Suspect]
     Active Substance: CABOZANTINIB S-MALATE
     Indication: RENAL CANCER
     Dosage: 60 MG, QD
     Route: 048
     Dates: start: 20170108, end: 2017
  24. REGLAN [Concomitant]
     Active Substance: METOCLOPRAMIDE HYDROCHLORIDE
  25. PARICALCITOL. [Concomitant]
     Active Substance: PARICALCITOL

REACTIONS (9)
  - Haemorrhage [Unknown]
  - Diarrhoea [Not Recovered/Not Resolved]
  - Hypertension [Recovering/Resolving]
  - Blood glucose increased [Recovering/Resolving]
  - Malaise [Unknown]
  - Dysgeusia [Unknown]
  - Heart rate increased [Recovering/Resolving]
  - Abdominal discomfort [Unknown]
  - Malignant neoplasm progression [Unknown]
